FAERS Safety Report 22963900 (Version 10)
Quarter: 2025Q2

REPORT INFORMATION
  Report Type: Spontaneous
  Country: CA (occurrence: CA)
  Receive Date: 20230921
  Receipt Date: 20250624
  Transmission Date: 20250717
  Serious: Yes (Hospitalization, Other)
  Sender: CELLTRION
  Company Number: CA-CELLTRION INC.-2023CA004662

PATIENT

DRUGS (18)
  1. INFLECTRA [Suspect]
     Active Substance: INFLIXIMAB-DYYB
     Indication: Crohn^s disease
     Route: 042
     Dates: start: 20230315
  2. INFLECTRA [Suspect]
     Active Substance: INFLIXIMAB-DYYB
     Route: 042
     Dates: start: 20230330, end: 20230330
  3. INFLECTRA [Suspect]
     Active Substance: INFLIXIMAB-DYYB
     Route: 042
     Dates: start: 20230817
  4. INFLECTRA [Suspect]
     Active Substance: INFLIXIMAB-DYYB
     Route: 042
     Dates: start: 20230912, end: 20230912
  5. INFLECTRA [Suspect]
     Active Substance: INFLIXIMAB-DYYB
     Route: 042
     Dates: start: 20231107
  6. INFLECTRA [Suspect]
     Active Substance: INFLIXIMAB-DYYB
     Route: 042
     Dates: start: 20240117
  7. INFLECTRA [Suspect]
     Active Substance: INFLIXIMAB-DYYB
     Route: 042
     Dates: start: 20241023
  8. INFLECTRA [Suspect]
     Active Substance: INFLIXIMAB-DYYB
     Route: 042
     Dates: start: 20241218
  9. INFLECTRA [Suspect]
     Active Substance: INFLIXIMAB-DYYB
     Route: 042
     Dates: start: 20250214
  10. INFLECTRA [Suspect]
     Active Substance: INFLIXIMAB-DYYB
     Route: 042
     Dates: start: 20250409
  11. INFLECTRA [Suspect]
     Active Substance: INFLIXIMAB-DYYB
     Route: 042
     Dates: start: 20250409
  12. INFLECTRA [Suspect]
     Active Substance: INFLIXIMAB-DYYB
     Route: 042
     Dates: start: 20250613
  13. ATORVASTATIN [Concomitant]
     Active Substance: ATORVASTATIN
  14. ESCITALOPRAM [Concomitant]
     Active Substance: ESCITALOPRAM OXALATE
  15. FINASTERIDE [Concomitant]
     Active Substance: FINASTERIDE
  16. FERROUS SULFATE [Concomitant]
     Active Substance: FERROUS SULFATE
  17. OMEPRAZOLE [Concomitant]
     Active Substance: OMEPRAZOLE
  18. TAMSULOSIN HYDROCHLORIDE [Concomitant]
     Active Substance: TAMSULOSIN HYDROCHLORIDE

REACTIONS (7)
  - Condition aggravated [Not Recovered/Not Resolved]
  - Intestinal resection [Unknown]
  - Drug level below therapeutic [Recovering/Resolving]
  - Off label use [Unknown]
  - Intentional product use issue [Unknown]
  - Off label use [Unknown]
  - Off label use [Unknown]

NARRATIVE: CASE EVENT DATE: 20230101
